FAERS Safety Report 6317528-X (Version None)
Quarter: 2009Q3

REPORT INFORMATION
  Report Type: 
  Country: None (occurrence: None)
  Receive Date: 20090821
  Receipt Date: 20090810
  Transmission Date: 20100115
  Serious: Yes (Other)
  Sender: FDA-Public Use
  Company Number: GB-ROCHE-649688

PATIENT
  Age: 62 Year
  Sex: Female

DRUGS (3)
  1. TAMIFLU [Suspect]
     Indication: DRUG USE FOR UNKNOWN INDICATION
     Dosage: DRUG WITHDRAWN.
     Route: 065
     Dates: start: 20090714, end: 20090719
  2. ACETAMINOPHEN WITH PROPOXYPHENE HCL TAB [Concomitant]
  3. CO-AMILOZIDE [Concomitant]

REACTIONS (1)
  - DEPRESSED MOOD [None]
